FAERS Safety Report 17103099 (Version 5)
Quarter: 2020Q1

REPORT INFORMATION
  Report Type: Report from Study
  Country: None (occurrence: ES)
  Receive Date: 20191203
  Receipt Date: 20200114
  Transmission Date: 20200409
  Serious: Yes (Death, Hospitalization, Disabling, Other)
  Sender: FDA-Public Use
  Company Number: ES-ABBVIE-19K-144-3175148-00

PATIENT
  Age: 86 Year
  Sex: Male

DRUGS (2)
  1. MORPHINE [Concomitant]
     Active Substance: MORPHINE
     Indication: PRODUCT USED FOR UNKNOWN INDICATION
     Route: 058
     Dates: start: 201912
  2. DUODOPA [Suspect]
     Active Substance: CARBIDOPA\LEVODOPA
     Indication: PARKINSON^S DISEASE
     Route: 050
     Dates: start: 20080529, end: 20200108

REACTIONS (8)
  - General physical health deterioration [Fatal]
  - Dysphagia [Fatal]
  - Asthenia [Not Recovered/Not Resolved]
  - Hypophagia [Unknown]
  - Parkinson^s disease [Unknown]
  - Aspiration [Recovered/Resolved]
  - Cardio-respiratory arrest [Recovered/Resolved]
  - Asthenia [Fatal]

NARRATIVE: CASE EVENT DATE: 201911
